FAERS Safety Report 12539376 (Version 2)
Quarter: 2016Q3

REPORT INFORMATION
  Report Type: Spontaneous
  Country: US (occurrence: US)
  Receive Date: 20160708
  Receipt Date: 20160714
  Transmission Date: 20161109
  Serious: No
  Sender: FDA-Public Use
  Company Number: US-009507513-1607USA000304

PATIENT
  Sex: Female

DRUGS (1)
  1. ASMANEX HFA [Suspect]
     Active Substance: MOMETASONE FUROATE
     Indication: ASTHMA
     Dosage: 220 MCG/ 2 PUFFS, TWICE A DAY (BID)
     Route: 055

REACTIONS (3)
  - Product quality issue [Unknown]
  - Drug dose omission [Unknown]
  - Dyspnoea [Unknown]
